FAERS Safety Report 25969127 (Version 1)
Quarter: 2025Q4

REPORT INFORMATION
  Report Type: Spontaneous
  Country: US (occurrence: None)
  Receive Date: 20251027
  Receipt Date: 20251027
  Transmission Date: 20260118
  Serious: Yes (Hospitalization)
  Sender: FDA-CTU
  Company Number: None

PATIENT
  Age: 66 Year
  Sex: Female
  Weight: 45.4 kg

DRUGS (7)
  1. PEMBROLIZUMAB [Suspect]
     Active Substance: PEMBROLIZUMAB
     Indication: Squamous cell carcinoma of the oral cavity
     Dosage: OTHER FREQUENCY : Q3 WEEKS;?
     Route: 042
     Dates: start: 20241210, end: 20250922
  2. DIFLUCAN [Concomitant]
     Active Substance: FLUCONAZOLE
  3. NEURONTIN [Concomitant]
     Active Substance: GABAPENTIN
  4. LEVAQUIN [Concomitant]
     Active Substance: LEVOFLOXACIN
  5. SYNTHROID [Concomitant]
     Active Substance: LEVOTHYROXINE SODIUM
     Dates: start: 20251015
  6. MELATONIN [Concomitant]
     Active Substance: MELATONIN
     Dates: start: 20241210
  7. sodium chloride 0.9% flush 3 mL [Concomitant]

REACTIONS (5)
  - Orocutaneous fistula [None]
  - Cachexia [None]
  - Abscess neck [None]
  - Hypothyroidism [None]
  - Dysphagia [None]

NARRATIVE: CASE EVENT DATE: 20251024
